FAERS Safety Report 14934130 (Version 1)
Quarter: 2018Q2

REPORT INFORMATION
  Report Type: Other
  Country: SK (occurrence: SK)
  Receive Date: 20180524
  Receipt Date: 20180524
  Transmission Date: 20180711
  Serious: Yes (Hospitalization)
  Sender: FDA-Public Use
  Company Number: SK-GLENMARK PHARMACEUTICALS-2018GMK035607

PATIENT

DRUGS (4)
  1. LINEZOLID. [Suspect]
     Active Substance: LINEZOLID
     Indication: POST PROCEDURAL FEVER
     Dosage: 2 G, UNK
     Route: 042
  2. PARACETAMOL [Suspect]
     Active Substance: ACETAMINOPHEN
     Indication: POST PROCEDURAL FEVER
     Dosage: UNK
     Route: 042
  3. CEFEPIM [Suspect]
     Active Substance: CEFEPIME HYDROCHLORIDE
     Indication: POST PROCEDURAL FEVER
     Dosage: 2 G, UNK
     Route: 042
  4. VANKOMYCIN ACTAVIS [Suspect]
     Active Substance: VANCOMYCIN HYDROCHLORIDE
     Indication: POST PROCEDURAL FEVER
     Dosage: UNK
     Route: 042

REACTIONS (1)
  - Toxic skin eruption [Not Recovered/Not Resolved]
